FAERS Safety Report 18740261 (Version 1)
Quarter: 2021Q1

REPORT INFORMATION
  Report Type: Spontaneous
  Country: US (occurrence: US)
  Receive Date: 20210114
  Receipt Date: 20210114
  Transmission Date: 20210419
  Serious: Yes (Life-Threatening, Hospitalization, Other)
  Sender: FDA-Public Use
  Company Number: None

PATIENT
  Age: 57 Year
  Sex: Female

DRUGS (16)
  1. PREMARIN [Concomitant]
     Active Substance: ESTROGENS, CONJUGATED
  2. PAXIL [Concomitant]
     Active Substance: PAROXETINE HYDROCHLORIDE
  3. TIROSINT [Concomitant]
     Active Substance: LEVOTHYROXINE SODIUM
  4. VITAMIN D3 [Concomitant]
     Active Substance: CHOLECALCIFEROL
  5. DIGOXIN. [Concomitant]
     Active Substance: DIGOXIN
  6. REVLIMID [Concomitant]
     Active Substance: LENALIDOMIDE
  7. XANAX [Concomitant]
     Active Substance: ALPRAZOLAM
  8. ZYRTEC [Concomitant]
     Active Substance: CETIRIZINE HYDROCHLORIDE
  9. FUROSEMIDE. [Concomitant]
     Active Substance: FUROSEMIDE
  10. POT CHLORIDE ER [Concomitant]
  11. PROBIOTIC [Concomitant]
     Active Substance: PROBIOTICS NOS
  12. SINGULAIR [Concomitant]
     Active Substance: MONTELUKAST SODIUM
  13. ASPIRIN. [Concomitant]
     Active Substance: ASPIRIN
  14. AMBRISENTAN [Suspect]
     Active Substance: AMBRISENTAN
     Indication: PULMONARY ARTERIAL HYPERTENSION
     Route: 048
     Dates: start: 20200125
  15. GABAPENTIN. [Concomitant]
     Active Substance: GABAPENTIN
  16. PREMARIN [Concomitant]
     Active Substance: ESTROGENS, CONJUGATED

REACTIONS (2)
  - Respiratory tract infection fungal [None]
  - SARS-CoV-2 test positive [None]

NARRATIVE: CASE EVENT DATE: 20201222
